FAERS Safety Report 14242142 (Version 1)
Quarter: 2017Q4

REPORT INFORMATION
  Report Type: Spontaneous
  Country: FR (occurrence: FR)
  Receive Date: 20171201
  Receipt Date: 20171201
  Transmission Date: 20180321
  Serious: Yes (Other)
  Sender: FDA-Public Use
  Company Number: FR-MERCK KGAA-2036451

PATIENT
  Age: 56 Year
  Sex: Female

DRUGS (1)
  1. NOVOTHYROX [Suspect]
     Active Substance: LEVOTHYROXINE SODIUM
     Indication: PRODUCT USED FOR UNKNOWN INDICATION

REACTIONS (11)
  - Malaise [None]
  - Alopecia [None]
  - Weight increased [None]
  - Sleep disorder [None]
  - Muscle spasms [None]
  - Blood pressure abnormal [None]
  - Headache [None]
  - Suicidal ideation [Recovered/Resolved]
  - Anxiety [None]
  - Nephropathy [None]
  - Nausea [None]
